FAERS Safety Report 14329317 (Version 2)
Quarter: 2018Q4

REPORT INFORMATION
  Report Type: Spontaneous
  Country: US (occurrence: US)
  Receive Date: 20171227
  Receipt Date: 20181217
  Transmission Date: 20190204
  Serious: Yes (Death, Hospitalization)
  Sender: FDA-Public Use
  Company Number: US-PFIZER INC-2017544414

PATIENT
  Age: 86 Year
  Sex: Female

DRUGS (4)
  1. IBUPROFEN. [Suspect]
     Active Substance: IBUPROFEN
     Dosage: UNK
     Route: 048
  2. AMLODIPINE/BENAZEPRIL [Suspect]
     Active Substance: AMLODIPINE BESYLATE\BENAZEPRIL HYDROCHLORIDE
     Dosage: UNK
     Route: 048
  3. HYDROCHLOROTHIAZIDE. [Suspect]
     Active Substance: HYDROCHLOROTHIAZIDE
     Dosage: UNK
     Route: 048
  4. METOPROLOL TARTRATE. [Suspect]
     Active Substance: METOPROLOL TARTRATE
     Dosage: UNK
     Route: 048

REACTIONS (1)
  - Completed suicide [Fatal]

NARRATIVE: CASE EVENT DATE: 2016
